FAERS Safety Report 18848329 (Version 1)
Quarter: 2021Q1

REPORT INFORMATION
  Report Type: Spontaneous
  Country: GB (occurrence: GB)
  Receive Date: 20210204
  Receipt Date: 20210204
  Transmission Date: 20210419
  Serious: Yes (Other)
  Sender: FDA-Public Use
  Company Number: GB-NOVOPROD-782530

PATIENT
  Age: 75 Year
  Sex: Male
  Weight: 114 kg

DRUGS (2)
  1. OZEMPIC [Suspect]
     Active Substance: SEMAGLUTIDE
     Indication: PRODUCT USED FOR UNKNOWN INDICATION
     Dosage: 0.25 MG, QW
     Route: 065
     Dates: start: 20210111, end: 20210118
  2. NOVOMIX 30 [Suspect]
     Active Substance: INSULIN ASPART
     Indication: PRODUCT USED FOR UNKNOWN INDICATION
     Dosage: UNK
     Route: 065

REACTIONS (5)
  - Chest discomfort [Not Recovered/Not Resolved]
  - Dizziness [Not Recovered/Not Resolved]
  - Inappropriate schedule of product administration [Unknown]
  - Disorientation [Not Recovered/Not Resolved]
  - Vomiting [Not Recovered/Not Resolved]

NARRATIVE: CASE EVENT DATE: 20210111
